FAERS Safety Report 5467760-2 (Version None)
Quarter: 2007Q3

REPORT INFORMATION
  Report Type: 
  Country: None (occurrence: None)
  Receive Date: 20070926
  Receipt Date: 20070919
  Transmission Date: 20080115
  Serious: Yes (Hospitalization)
  Sender: FDA-Public Use
  Company Number: PHBS2007CN09901

PATIENT
  Age: 79 Year
  Sex: Female

DRUGS (7)
  1. ZELNORM [Suspect]
     Indication: IRRITABLE BOWEL SYNDROME
     Dosage: 6 MG, BID
     Route: 048
     Dates: start: 20070404, end: 20070414
  2. DIGOXIN [Concomitant]
     Indication: CARDIAC FAILURE CHRONIC
  3. HYDROCHLOROTHIAZIDE [Concomitant]
     Indication: CARDIAC FAILURE CHRONIC
  4. LOSARTAN POTASSIUM [Concomitant]
     Indication: HYPERTENSION
     Dosage: 50 MG, QD
  5. NIFEDIPINE [Concomitant]
     Indication: HYPERTENSION
     Dosage: 0.5 DF, QD
  6. STATIN [Concomitant]
     Indication: HYPERLIPIDAEMIA
     Dates: end: 20070101
  7. GOLD THERAGRAN [Concomitant]
     Indication: HYPERLIPIDAEMIA

REACTIONS (13)
  - BLOOD GLUCOSE INCREASED [None]
  - BLOOD PRESSURE SYSTOLIC INCREASED [None]
  - CARDIAC DISCOMFORT [None]
  - CHEST DISCOMFORT [None]
  - CORONARY ARTERY DISEASE [None]
  - ELECTROCARDIOGRAM ST SEGMENT ABNORMAL [None]
  - HEART RATE INCREASED [None]
  - INFLUENZA [None]
  - MYOCARDIAL ISCHAEMIA [None]
  - OEDEMA PERIPHERAL [None]
  - PALPITATIONS [None]
  - SINUS TACHYCARDIA [None]
  - VENTRICULAR EXTRASYSTOLES [None]
